FAERS Safety Report 8417856-8 (Version None)
Quarter: 2012Q2

REPORT INFORMATION
  Report Type: 
  Country: None (occurrence: None)
  Receive Date: 20120607
  Receipt Date: 20120604
  Transmission Date: 20120825
  Serious: No
  Sender: FDA-Public Use
  Company Number: US-PFIZER INC-2012134370

PATIENT
  Sex: Female

DRUGS (3)
  1. SOMAVERT [Suspect]
     Indication: GIGANTISM
  2. SOMAVERT [Suspect]
     Indication: ACROMEGALY
     Dosage: 10 MG, UNK
     Route: 058
     Dates: start: 20120401
  3. EFFEXOR [Concomitant]
     Dosage: UNK

REACTIONS (1)
  - HEADACHE [None]
